FAERS Safety Report 23405077 (Version 1)
Quarter: 2024Q1

REPORT INFORMATION
  Report Type: Report from Study
  Country: AE (occurrence: AE)
  Receive Date: 20240116
  Receipt Date: 20240116
  Transmission Date: 20240409
  Serious: Yes (Death)
  Sender: FDA-Public Use
  Company Number: AE-AstraZeneca-2024A010496

PATIENT
  Sex: Female

DRUGS (1)
  1. ENHERTU [Suspect]
     Active Substance: FAM-TRASTUZUMAB DERUXTECAN-NXKI
     Indication: Breast cancer
     Dosage: 356 MG, ONCE EVERY 3 WK
     Route: 042
     Dates: start: 202309, end: 202312

REACTIONS (1)
  - Death [Fatal]

NARRATIVE: CASE EVENT DATE: 20231201
